FAERS Safety Report 9169380 (Version 2)
Quarter: 2013Q2

REPORT INFORMATION
  Report Type: Spontaneous
  Country: US (occurrence: US)
  Receive Date: 20130318
  Receipt Date: 20130514
  Transmission Date: 20140414
  Serious: Yes (Other)
  Sender: FDA-Public Use
  Company Number: US-PFIZER INC-2013087319

PATIENT
  Sex: Female

DRUGS (5)
  1. PROVERA [Suspect]
     Dosage: 10 MG, UNK
  2. PROVERA [Suspect]
     Dosage: UNK
  3. PROCARDIA XL [Suspect]
     Dosage: 30 MG, UNK
  4. DETROL LA [Suspect]
     Dosage: 2 MG, UNK
  5. DETROL LA [Suspect]
     Dosage: UNK

REACTIONS (4)
  - Gastric ulcer [Unknown]
  - Abdominal pain upper [Unknown]
  - Bronchitis [Unknown]
  - Insomnia [Unknown]
